FAERS Safety Report 10058055 (Version 1)
Quarter: 2014Q2

REPORT INFORMATION
  Report Type: Spontaneous
  Country: US (occurrence: US)
  Receive Date: 20140404
  Receipt Date: 20140404
  Transmission Date: 20141212
  Serious: No
  Sender: FDA-Public Use
  Company Number: US-PFIZER INC-2014091989

PATIENT
  Age: 57 Year
  Sex: Male
  Weight: 104.31 kg

DRUGS (8)
  1. ATENOLOL [Concomitant]
     Dosage: 25 MG, 1X/DAY
  2. BABY ASPIRIN [Concomitant]
     Dosage: 81 MG, UNK
  3. CAVERJECT [Suspect]
     Indication: ERECTILE DYSFUNCTION
     Dosage: 40 UG, AS NEEDED
     Dates: start: 201403
  4. FENOFIBRIC ACID [Concomitant]
     Dosage: 135 MG, 1X/DAY
  5. METFORMIN [Concomitant]
     Indication: DIABETES MELLITUS
     Dosage: 1000 MG, 1X/DAY
  6. KLOR-CON [Concomitant]
     Dosage: 20 MG, 1X/DAY
  7. NIFEDICAL XL [Concomitant]
     Dosage: 30 MG, 1X/DAY
  8. SERTRALINE [Concomitant]
     Dosage: 100 MG, 2X/DAY

REACTIONS (1)
  - Urine amphetamine positive [Unknown]
